FAERS Safety Report 5874279-3 (Version None)
Quarter: 2008Q3

REPORT INFORMATION
  Report Type: 
  Country: None (occurrence: None)
  Receive Date: 20080908
  Receipt Date: 20080827
  Transmission Date: 20090109
  Serious: Yes (Hospitalization)
  Sender: FDA-Public Use
  Company Number: NO-ASTRAZENECA-2004SE04513

PATIENT
  Age: 23995 Day
  Sex: Male

DRUGS (9)
  1. ZESTORETIC [Suspect]
     Route: 048
     Dates: start: 20021111, end: 20031011
  2. FUROSEMID [Concomitant]
  3. ISOPTIN [Concomitant]
  4. CARDURA [Concomitant]
  5. PRAVACHOL [Concomitant]
  6. ZYLORIC [Concomitant]
  7. WARFARIN SODIUM [Concomitant]
  8. DIGITOXIN INJ [Concomitant]
  9. ETALPHA [Concomitant]
     Dates: start: 20030729

REACTIONS (2)
  - ANGIOEDEMA [None]
  - ESCHERICHIA SEPSIS [None]
